FAERS Safety Report 9302993 (Version 1)
Quarter: 2013Q2

REPORT INFORMATION
  Report Type: Spontaneous
  Country: US (occurrence: US)
  Receive Date: 20130522
  Receipt Date: 20130522
  Transmission Date: 20140414
  Serious: Yes (Other)
  Sender: FDA-Public Use
  Company Number: US-PFIZER INC-2013153766

PATIENT
  Age: 19 Year
  Sex: Female
  Weight: 53.97 kg

DRUGS (2)
  1. ADVIL [Suspect]
     Indication: ABDOMINAL PAIN UPPER
     Dosage: 200 MG, AS NEEDED
     Route: 048
  2. ADVIL [Suspect]
     Dosage: 2 CAPSULES OF 200MG TOGETHER
     Route: 048
     Dates: start: 20130515, end: 20130515

REACTIONS (9)
  - Hypersensitivity [Unknown]
  - Urticaria [Unknown]
  - Pruritus [Unknown]
  - Rash erythematous [Recovered/Resolved]
  - Eye swelling [Not Recovered/Not Resolved]
  - Lip swelling [Not Recovered/Not Resolved]
  - Swelling face [Not Recovered/Not Resolved]
  - Eye pain [Unknown]
  - Hypersomnia [Unknown]
